FAERS Safety Report 8605742-X (Version None)
Quarter: 2012Q3

REPORT INFORMATION
  Report Type: 
  Country: None (occurrence: None)
  Receive Date: 20120820
  Receipt Date: 20120810
  Transmission Date: 20120928
  Serious: Yes (Other)
  Sender: FDA-Public Use
  Company Number: US-ASTRAZENECA-2012SE16629

PATIENT
  Age: 55 Year
  Sex: Male

DRUGS (2)
  1. PRILOSEC OTC [Suspect]
     Route: 048
  2. NEXIUM [Suspect]
     Route: 048

REACTIONS (9)
  - INTERVERTEBRAL DISC PROTRUSION [None]
  - HYPERCHLORHYDRIA [None]
  - ADVERSE EVENT [None]
  - DYSPEPSIA [None]
  - SLEEP DISORDER DUE TO A GENERAL MEDICAL CONDITION [None]
  - ARTHROPATHY [None]
  - FOOT FRACTURE [None]
  - DRUG INEFFECTIVE [None]
  - CERVICAL VERTEBRAL FRACTURE [None]
